FAERS Safety Report 7158392-9 (Version None)
Quarter: 2010Q4

REPORT INFORMATION
  Report Type: 
  Country: None (occurrence: None)
  Receive Date: 20101214
  Receipt Date: 20100607
  Transmission Date: 20110411
  Serious: No
  Sender: FDA-Public Use
  Company Number: US-ASTRAZENECA-2010SE26266

PATIENT
  Age: 70 Year
  Sex: Female

DRUGS (4)
  1. CRESTOR [Suspect]
     Indication: HYPERCHOLESTEROLAEMIA
     Route: 048
     Dates: start: 20100101
  2. ZETIA [Concomitant]
  3. DIAVAN HCT [Concomitant]
  4. BONEVA [Concomitant]

REACTIONS (4)
  - ASTHENIA [None]
  - LETHARGY [None]
  - PAIN IN EXTREMITY [None]
  - VITAMIN D DEFICIENCY [None]
